FAERS Safety Report 18077620 (Version 1)
Quarter: 2020Q3

REPORT INFORMATION
  Report Type: Spontaneous
  Country: HR (occurrence: HR)
  Receive Date: 20200728
  Receipt Date: 20200728
  Transmission Date: 20201103
  Serious: Yes (Other)
  Sender: FDA-Public Use
  Company Number: HR-TEVA-2020-HR-1805021

PATIENT
  Age: 46 Year
  Sex: Male
  Weight: 89 kg

DRUGS (8)
  1. DIAZEPAM. [Concomitant]
     Active Substance: DIAZEPAM
     Dosage: 15 MG , FORM OF ADMIN: UNSPECIFIED
     Route: 048
  2. AKINETON [Concomitant]
     Active Substance: BIPERIDEN HYDROCHLORIDE
     Indication: SOMATIC SYMPTOM DISORDER
     Dosage: 2 MG
     Route: 048
     Dates: start: 20200210, end: 20200615
  3. RISSET [Suspect]
     Active Substance: RISPERIDONE
     Indication: SOMATIC SYMPTOM DISORDER
     Dosage: 6 MG
     Route: 048
     Dates: start: 20191223, end: 20200615
  4. DULOXETINE. [Concomitant]
     Active Substance: DULOXETINE
     Dosage: 30 MG, FORM OF ADMIN: UNSPECIFIED
     Route: 048
  5. CERSON [Concomitant]
     Active Substance: NITRAZEPAM
     Dosage: 5 MG
     Route: 048
  6. AZOLAR [Interacting]
     Active Substance: ARIPIPRAZOLE
     Indication: SOMATIC SYMPTOM DISORDER
     Dosage: 20 MG
     Route: 048
     Dates: start: 20150324, end: 20200519
  7. LEPONEX [Concomitant]
     Active Substance: CLOZAPINE
     Indication: SOMATIC SYMPTOM DISORDER
     Dosage: 12.5 MG
     Route: 048
     Dates: start: 20200217
  8. NORMABEL [Concomitant]
     Active Substance: DIAZEPAM
     Indication: SOMATIC SYMPTOM DISORDER
     Dosage: 10 MG
     Route: 048
     Dates: start: 20200217

REACTIONS (6)
  - Medication error [Unknown]
  - Muscle rigidity [Recovering/Resolving]
  - Drug interaction [Recovering/Resolving]
  - Tremor [Recovering/Resolving]
  - Neuroleptic malignant syndrome [Recovering/Resolving]
  - Body temperature increased [Recovering/Resolving]

NARRATIVE: CASE EVENT DATE: 2019
